FAERS Safety Report 7438578-6 (Version None)
Quarter: 2011Q2

REPORT INFORMATION
  Report Type: 
  Country: None (occurrence: None)
  Receive Date: 20110426
  Receipt Date: 20110412
  Transmission Date: 20111010
  Serious: Yes (Life-Threatening, Hospitalization)
  Sender: FDA-Public Use
  Company Number: NL-BAYER-2011-031454

PATIENT
  Age: 27 Year
  Sex: Male
  Weight: 78 kg

DRUGS (3)
  1. FLUANXOL [Concomitant]
     Dosage: DAILY DOSE 3 DF
     Dates: start: 20100101
  2. RENNIE [Suspect]
     Indication: DYSPEPSIA
     Dosage: DAILY DOSE 18 DF
     Dates: start: 20110311, end: 20110312
  3. OMEPRAZOLE [Concomitant]
     Dosage: 40 MG, BID
     Dates: start: 20100101

REACTIONS (1)
  - PULMONARY EMBOLISM [None]
